FAERS Safety Report 4718066-8 (Version None)
Quarter: 2005Q3

REPORT INFORMATION
  Report Type: 
  Country: None (occurrence: None)
  Receive Date: 20050718
  Receipt Date: 20050718
  Transmission Date: 20060218
  Serious: Yes (Hospitalization)
  Sender: FDA-Public Use
  Company Number: None

PATIENT
  Age: 83 Year
  Sex: Male
  Weight: 72.5755 kg

DRUGS (1)
  1. GALANTAMINE     4 MG [Suspect]
     Indication: DEMENTIA ALZHEIMER'S TYPE
     Dosage: 4 MG    BID    ORAL
     Route: 048
     Dates: start: 20050617, end: 20050705

REACTIONS (9)
  - ACTIVITIES OF DAILY LIVING IMPAIRED [None]
  - ASTHENIA [None]
  - CONDITION AGGRAVATED [None]
  - DEMENTIA [None]
  - DRUG TOXICITY [None]
  - DYSARTHRIA [None]
  - MENTAL STATUS CHANGES [None]
  - URINARY INCONTINENCE [None]
  - VISION BLURRED [None]
